FAERS Safety Report 17954102 (Version 1)
Quarter: 2020Q2

REPORT INFORMATION
  Report Type: Spontaneous
  Country: GB (occurrence: GB)
  Receive Date: 20200629
  Receipt Date: 20200629
  Transmission Date: 20200714
  Serious: Yes (Death, Other)
  Sender: FDA-Public Use
  Company Number: GB-SUN PHARMACEUTICAL INDUSTRIES LTD-2020R1-251218

PATIENT
  Sex: Male
  Weight: 3 kg

DRUGS (3)
  1. SODIUM THIOSULPHATE [Suspect]
     Active Substance: SODIUM THIOSULFATE
     Indication: CARDIAC DYSFUNCTION
     Dosage: UNK
     Route: 042
  2. ETIDRONATE [Suspect]
     Active Substance: ETIDRONATE DISODIUM
     Indication: CARDIAC DYSFUNCTION
     Dosage: UNK
     Route: 048
  3. PAMIDRONATE [Suspect]
     Active Substance: PAMIDRONATE DISODIUM
     Indication: CARDIAC DYSFUNCTION
     Dosage: UNK
     Route: 065

REACTIONS (2)
  - Drug ineffective [Fatal]
  - Condition aggravated [Fatal]
